FAERS Safety Report 14158488 (Version 1)
Quarter: 2017Q4

REPORT INFORMATION
  Report Type: Other
  Country: FR (occurrence: FR)
  Receive Date: 20171106
  Receipt Date: 20171106
  Transmission Date: 20180321
  Serious: Yes (Congenital Anomaly)
  Sender: FDA-Public Use
  Company Number: FR-ORCHID HEALTHCARE-2033246

PATIENT
  Sex: Male
  Weight: 4.64 kg

DRUGS (2)
  1. OLANZAPINE. [Suspect]
     Active Substance: OLANZAPINE
     Indication: SCHIZOPHRENIA
     Route: 065
  2. HALOPERIDOL. [Concomitant]
     Active Substance: HALOPERIDOL
     Route: 065

REACTIONS (6)
  - Tremor [Recovered/Resolved]
  - Respiratory distress [Recovered/Resolved]
  - Hypotonia [Recovered/Resolved]
  - Coma [Recovered/Resolved]
  - Foetal heart rate abnormal [Recovered/Resolved]
  - Hypoglycaemia [Recovered/Resolved]
